FAERS Safety Report 17716875 (Version 1)
Quarter: 2020Q2

REPORT INFORMATION
  Report Type: Spontaneous
  Country: GB (occurrence: GB)
  Receive Date: 20200428
  Receipt Date: 20200428
  Transmission Date: 20200714
  Serious: Yes (Other)
  Sender: FDA-Public Use
  Company Number: GB-TEVA-2020-GB-1227303

PATIENT
  Age: 52 Year
  Sex: Male
  Weight: 77 kg

DRUGS (13)
  1. METFORMIN [Concomitant]
     Active Substance: METFORMIN HYDROCHLORIDE
     Dosage: 5 ML
     Dates: start: 20190914
  2. RAMIPRIL. [Concomitant]
     Active Substance: RAMIPRIL
     Dosage: 1 DOSAGE FORMS DAILY; MORNING
     Dates: start: 20200108
  3. LAXIDO [Concomitant]
     Active Substance: POLYETHYLENE GLYCOL 3350\POTASSIUM CHLORIDE\SODIUM BICARBONATE\SODIUM CHLORIDE
     Indication: CONSTIPATION
     Dosage: SACHET, 2 DOSAGE FORMS
     Dates: start: 20191123
  4. PARACETAMOL [Concomitant]
     Active Substance: ACETAMINOPHEN
     Dosage: 2 DOSAGE FORMS
     Dates: start: 20191022
  5. DULOXETINE. [Suspect]
     Active Substance: DULOXETINE
     Dosage: 30 MG
     Dates: start: 20190914
  6. AMOXICILLIN. [Concomitant]
     Active Substance: AMOXICILLIN
     Dosage: 3 DOSAGE FORMS
     Dates: start: 20200118, end: 20200123
  7. CYCLIZINE [Concomitant]
     Active Substance: CYCLIZINE
     Dosage: 1 DOSAGE FORM
     Dates: start: 20190914, end: 20200120
  8. AMITRIPTYLINE HYDROCHLORIDE. [Concomitant]
     Active Substance: AMITRIPTYLINE HYDROCHLORIDE
     Dosage: 1 DOSAGE FORMS DAILY; AT NIGHT
     Dates: start: 20200120, end: 20200213
  9. GABAPENTIN. [Concomitant]
     Active Substance: GABAPENTIN
     Dosage: VARIABLE DOSE
     Dates: start: 20200228
  10. FLUCLOXACILLIN [Concomitant]
     Active Substance: FLUCLOXACILLIN
     Dosage: ON AN EMPTY STOMACH, 4 DOSAGE FORMS
     Dates: start: 20200318, end: 20200325
  11. OMEPRAZOLE. [Concomitant]
     Active Substance: OMEPRAZOLE
     Dosage: 1 DOSAGE FORMS DAILY; MORNING
     Dates: start: 20190914
  12. IBUPROFEN. [Concomitant]
     Active Substance: IBUPROFEN
     Dosage: 2 DOSAGE FORMS
     Dates: start: 20200105, end: 20200105
  13. ATORVASTATIN [Concomitant]
     Active Substance: ATORVASTATIN
     Dosage: 1 DOSAGE FORMS DAILY; AT NIGHT, AVOID GRAPEFRUIT JUICE
     Dates: start: 20200108

REACTIONS (1)
  - Hypohidrosis [Recovered/Resolved]

NARRATIVE: CASE EVENT DATE: 20200403
